FAERS Safety Report 8596535-0 (Version None)
Quarter: 2012Q3

REPORT INFORMATION
  Report Type: 
  Country: None (occurrence: None)
  Receive Date: 20120815
  Receipt Date: 20120808
  Transmission Date: 20120928
  Serious: Yes (Other)
  Sender: FDA-Public Use
  Company Number: DE-TEVA-353154USA

PATIENT
  Sex: Male

DRUGS (1)
  1. TREANDA [Suspect]
     Route: 042
     Dates: start: 20120605

REACTIONS (1)
  - GASTROINTESTINAL INFECTION [None]
